FAERS Safety Report 6309182-8 (Version None)
Quarter: 2009Q3

REPORT INFORMATION
  Report Type: 
  Country: None (occurrence: None)
  Receive Date: 20090814
  Receipt Date: 20090616
  Transmission Date: 20100115
  Serious: No
  Sender: FDA-Public Use
  Company Number: A0792032A

PATIENT
  Age: 52 Year
  Sex: Female

DRUGS (2)
  1. COREG CR [Suspect]
     Indication: HYPERTENSION
     Dosage: 10MG SINGLE DOSE
     Route: 048
  2. HERBAL SUPPLEMENTS [Concomitant]

REACTIONS (3)
  - CRYING [None]
  - EYE OEDEMA [None]
  - VISUAL IMPAIRMENT [None]
